FAERS Safety Report 24203109 (Version 1)
Quarter: 2024Q3

REPORT INFORMATION
  Report Type: Spontaneous
  Country: PL (occurrence: PL)
  Receive Date: 20240813
  Receipt Date: 20240813
  Transmission Date: 20241017
  Serious: Yes (Life-Threatening, Other)
  Sender: AUROBINDO
  Company Number: PL-URPL-1-1923-2020

PATIENT
  Age: 48 Year
  Sex: Female
  Weight: 80 kg

DRUGS (3)
  1. SERTRALINE HYDROCHLORIDE [Suspect]
     Active Substance: SERTRALINE HYDROCHLORIDE
     Indication: Product used for unknown indication
     Dosage: 10 DOSAGE FORM
     Route: 048
     Dates: start: 20200721
  2. LAMOTRIGINE [Suspect]
     Active Substance: LAMOTRIGINE
     Indication: Product used for unknown indication
     Dosage: 20 DOSAGE FORM
     Route: 048
     Dates: start: 20200721
  3. DULOXETINE [Suspect]
     Active Substance: DULOXETINE
     Indication: Product used for unknown indication
     Dosage: 14 DOSAGE FORM
     Route: 048
     Dates: start: 20200721

REACTIONS (4)
  - Balance disorder [Recovered/Resolved]
  - Depressed mood [Recovered/Resolved]
  - Somnolence [Recovered/Resolved]
  - Suicide attempt [Recovered/Resolved]

NARRATIVE: CASE EVENT DATE: 20200721
